FAERS Safety Report 25866788 (Version 1)
Quarter: 2025Q3

REPORT INFORMATION
  Report Type: Report from Study
  Country: CO (occurrence: CO)
  Receive Date: 20250930
  Receipt Date: 20250930
  Transmission Date: 20251020
  Serious: Yes (Hospitalization)
  Sender: ABBVIE
  Company Number: CO-JNJFOC-20250943580

PATIENT
  Age: 80 Year
  Sex: Male
  Weight: 71 kg

DRUGS (1)
  1. IMBRUVICA [Suspect]
     Active Substance: IBRUTINIB
     Indication: Mantle cell lymphoma
     Route: 048
     Dates: start: 20250904

REACTIONS (3)
  - Paralysis [Recovering/Resolving]
  - Haemorrhage [Recovering/Resolving]
  - Nervous system disorder [Recovering/Resolving]

NARRATIVE: CASE EVENT DATE: 20250911
